FAERS Safety Report 12457153 (Version 4)
Quarter: 2017Q1

REPORT INFORMATION
  Report Type: Report from Study
  Country: CA (occurrence: CA)
  Receive Date: 20160610
  Receipt Date: 20170221
  Transmission Date: 20170428
  Serious: Yes (Death, Hospitalization)
  Sender: FDA-Public Use
  Company Number: PHHY2015CA030491

PATIENT
  Age: 58 Year
  Sex: Female

DRUGS (8)
  1. ZOPICLONE [Concomitant]
     Active Substance: ZOPICLONE
     Indication: PRODUCT USED FOR UNKNOWN INDICATION
     Route: 065
  2. SANDOSTATIN LAR DEPOT [Suspect]
     Active Substance: OCTREOTIDE ACETATE
     Dosage: 60 MG, QMO/EVERY 4 WEEKS
     Route: 030
     Dates: start: 20151110
  3. BABY ASPIRIN [Concomitant]
     Active Substance: ASPIRIN
     Indication: PRODUCT USED FOR UNKNOWN INDICATION
     Route: 065
  4. SANDOSTATIN LAR DEPOT [Suspect]
     Active Substance: OCTREOTIDE ACETATE
     Dosage: 30 MG, QMO/EVERY 4 WEEKS
     Route: 030
     Dates: start: 20160426
  5. HCTZ [Concomitant]
     Active Substance: HYDROCHLOROTHIAZIDE
     Indication: PRODUCT USED FOR UNKNOWN INDICATION
     Route: 065
  6. SANDOSTATIN LAR DEPOT [Suspect]
     Active Substance: OCTREOTIDE ACETATE
     Indication: CARCINOID TUMOUR
     Dosage: 30 MG, QMO/EVERY 4 WEEKS
     Route: 030
     Dates: start: 20150209
  7. SANDOSTATIN LAR DEPOT [Suspect]
     Active Substance: OCTREOTIDE ACETATE
     Dosage: 60 MG (1 DOSE)
     Route: 030
     Dates: start: 20160429
  8. SANDOSTATIN LAR DEPOT [Suspect]
     Active Substance: OCTREOTIDE ACETATE
     Dosage: 60 MG, QMO/EVERY 4 WEEKS
     Route: 030
     Dates: start: 20160715, end: 20170110

REACTIONS (19)
  - Nervousness [Unknown]
  - Headache [Unknown]
  - Blood pressure systolic increased [Unknown]
  - Depression [Unknown]
  - Emotional disorder [Unknown]
  - Fatigue [Unknown]
  - Blood pressure increased [Unknown]
  - Oropharyngeal pain [Unknown]
  - Feeling abnormal [Unknown]
  - Restlessness [Unknown]
  - Vomiting [Unknown]
  - Needle issue [Unknown]
  - Death [Fatal]
  - Rhinitis [Unknown]
  - Nausea [Unknown]
  - Pain in extremity [Unknown]
  - Lip dry [Unknown]
  - Body temperature decreased [Unknown]
  - Prescribed overdose [Unknown]

NARRATIVE: CASE EVENT DATE: 20150309
